FAERS Safety Report 22172958 (Version 12)
Quarter: 2023Q4

REPORT INFORMATION
  Report Type: Report from Study
  Country: US (occurrence: US)
  Receive Date: 20230404
  Receipt Date: 20231127
  Transmission Date: 20240110
  Serious: Yes (Hospitalization, Other)
  Sender: FDA-Public Use
  Company Number: US-UCBSA-2023016967

PATIENT
  Age: 2 Year
  Sex: Female

DRUGS (6)
  1. FINTEPLA [Suspect]
     Active Substance: FENFLURAMINE
     Indication: Seizure cluster
     Dosage: 1 ML IN THE MORNING AND 1.5 ML IN THE EVENING
     Route: 048
  2. FINTEPLA [Suspect]
     Active Substance: FENFLURAMINE
     Indication: Severe myoclonic epilepsy of infancy
     Dosage: 1 ML IN THE MORNING AND 1.5 ML IN THE EVENING
     Route: 048
     Dates: start: 20220921
  3. FINTEPLA [Suspect]
     Active Substance: FENFLURAMINE
     Dosage: 1 ML IN THE MORNING AND 2 ML IN THE EVENING
     Route: 048
     Dates: start: 20220922
  4. FINTEPLA [Suspect]
     Active Substance: FENFLURAMINE
     Dosage: 1 ML IN THE MORNING AND 2 ML IN THE EVENING
  5. FINTEPLA [Suspect]
     Active Substance: FENFLURAMINE
     Dosage: 1 ML IN THE MORNING AND 2 ML IN THE EVENING/1 ML IN AM AND 2 ML PM
  6. FINTEPLA [Suspect]
     Active Substance: FENFLURAMINE
     Dosage: 1 ML IN THE MORNING AND 2 ML IN THE EVENING/1 ML IN AM AND 2 ML PM

REACTIONS (14)
  - Respiratory syncytial virus test [Recovered/Resolved]
  - Pneumonia [Recovered/Resolved]
  - Weight decreased [Recovered/Resolved]
  - Pyrexia [Recovered/Resolved]
  - Tachycardia [Recovered/Resolved]
  - Parainfluenzae virus infection [Recovered/Resolved]
  - Ear infection [Not Recovered/Not Resolved]
  - Insomnia [Not Recovered/Not Resolved]
  - Middle insomnia [Not Recovered/Not Resolved]
  - Seizure [Not Recovered/Not Resolved]
  - Change in seizure presentation [Not Recovered/Not Resolved]
  - COVID-19 [Not Recovered/Not Resolved]
  - Diarrhoea [Recovered/Resolved]
  - Product use issue [Unknown]

NARRATIVE: CASE EVENT DATE: 20220922
